FAERS Safety Report 11137847 (Version 1)
Quarter: 2015Q2

REPORT INFORMATION
  Report Type: Spontaneous
  Country: US (occurrence: US)
  Receive Date: 20150526
  Receipt Date: 20150526
  Transmission Date: 20150821
  Serious: No
  Sender: FDA-Public Use
  Company Number: US-MALLINCKRODT-T201500265

PATIENT
  Age: 47 Year
  Sex: Female
  Weight: 98 kg

DRUGS (11)
  1. H.P. ACTHAR [Suspect]
     Active Substance: CORTICOTROPIN
     Indication: SYSTEMIC LUPUS ERYTHEMATOSUS
     Dosage: 80 U, BIWEEKLY
     Route: 030
     Dates: start: 201406, end: 201406
  2. H.P. ACTHAR [Suspect]
     Active Substance: CORTICOTROPIN
     Dosage: 80 U, BIWEEKLY
     Route: 030
     Dates: start: 20140615
  3. ULTRAM ER [Concomitant]
     Active Substance: TRAMADOL HYDROCHLORIDE
  4. MOTRIN [Concomitant]
     Active Substance: IBUPROFEN
     Dosage: UNK
     Dates: start: 201408
  5. LEXAPRO [Concomitant]
     Active Substance: ESCITALOPRAM OXALATE
  6. LODINE [Concomitant]
     Active Substance: ETODOLAC
  7. KLONOPIN [Concomitant]
     Active Substance: CLONAZEPAM
  8. BENLYSTA [Concomitant]
     Active Substance: BELIMUMAB
  9. PLAQUENIL [Concomitant]
     Active Substance: HYDROXYCHLOROQUINE SULFATE
  10. H.P. ACTHAR [Suspect]
     Active Substance: CORTICOTROPIN
     Dosage: 80 U, SINGLE
     Route: 030
     Dates: start: 20140829, end: 20140829
  11. TYLENOL [Concomitant]
     Active Substance: ACETAMINOPHEN
     Dosage: UNK
     Dates: start: 201408

REACTIONS (10)
  - Arthralgia [Not Recovered/Not Resolved]
  - Systemic lupus erythematosus [Unknown]
  - Headache [Not Recovered/Not Resolved]
  - Lethargy [Recovered/Resolved]
  - Drug dose omission [Unknown]
  - Pyrexia [Not Recovered/Not Resolved]
  - Influenza like illness [Not Recovered/Not Resolved]
  - Pulmonary congestion [Unknown]
  - Gastroenteritis viral [Unknown]
  - Sinus congestion [None]

NARRATIVE: CASE EVENT DATE: 201406
